FAERS Safety Report 15106108 (Version 1)
Quarter: 2018Q3

REPORT INFORMATION
  Report Type: Spontaneous
  Country: ES (occurrence: ES)
  Receive Date: 20180704
  Receipt Date: 20180704
  Transmission Date: 20181010
  Serious: Yes (Hospitalization)
  Sender: FDA-Public Use
  Company Number: ES-SUN PHARMACEUTICAL INDUSTRIES LTD-2018R1-177276

PATIENT
  Age: 74 Year
  Sex: Male

DRUGS (2)
  1. CLOPIDOGREL [Suspect]
     Active Substance: CLOPIDOGREL BISULFATE
     Indication: PRODUCT USED FOR UNKNOWN INDICATION
     Dosage: UNK
     Route: 048
     Dates: start: 20180525, end: 20180601
  2. ADIRO COMPRIMIDOS GASTRORRESISTENTES EFG, 30 COMPRIMIDOS [Interacting]
     Active Substance: ASPIRIN
     Indication: PRODUCT USED FOR UNKNOWN INDICATION
     Dosage: FECHA FICTICIA DE INICIO DE TTO
     Route: 048
     Dates: start: 2017

REACTIONS (4)
  - Drug interaction [Recovered/Resolved]
  - Peptic ulcer haemorrhage [Recovered/Resolved]
  - Product substitution error [Recovered/Resolved]
  - Drug dose omission [Recovered/Resolved]

NARRATIVE: CASE EVENT DATE: 20180525
